FAERS Safety Report 4386613-4 (Version None)
Quarter: 2004Q2

REPORT INFORMATION
  Report Type: 
  Country: None (occurrence: None)
  Receive Date: 20040629
  Receipt Date: 20040617
  Transmission Date: 20050107
  Serious: Yes (Death)
  Sender: FDA-Public Use
  Company Number: JP-GLAXOSMITHKLINE-B0336090A

PATIENT
  Age: 87 Year
  Sex: Female

DRUGS (11)
  1. VALTREX [Suspect]
     Indication: HERPES ZOSTER
     Dosage: 1000MG THREE TIMES PER DAY
     Route: 048
     Dates: start: 20040611, end: 20040615
  2. CIBENOL [Concomitant]
     Route: 048
  3. VASOLAN [Concomitant]
     Route: 048
  4. GASTER D [Concomitant]
     Route: 048
  5. HERBESSER R [Concomitant]
     Route: 048
  6. ALFA D3 [Concomitant]
     Route: 048
  7. BUP-4 [Concomitant]
     Route: 048
  8. LENDEM [Concomitant]
     Route: 048
  9. FLOMOX [Concomitant]
     Route: 048
  10. FRANDOL S [Concomitant]
     Route: 062
  11. HUMULIN R [Concomitant]

REACTIONS (1)
  - RENAL FAILURE ACUTE [None]
